FAERS Safety Report 7240925 (Version 2)
Quarter: 2020Q3

REPORT INFORMATION
  Report Type: Report from Study
  Country: US (occurrence: US)
  Receive Date: 20100108
  Receipt Date: 20200401
  Transmission Date: 20201105
  Serious: Yes (Life-Threatening, Hospitalization)
  Sender: FDA-Public Use
  Company Number: US-JNJFOC-20050201518

PATIENT
  Age: 6 Year
  Sex: Male
  Weight: 21.2 kg

DRUGS (7)
  1. METRONIDAZOLE. [Concomitant]
     Active Substance: METRONIDAZOLE
     Indication: OVERGROWTH BACTERIAL
     Dates: start: 20041017, end: 20050103
  2. CEPHALEXIN. [Concomitant]
     Active Substance: CEPHALEXIN
     Indication: OVERGROWTH BACTERIAL
     Dates: start: 20041017, end: 20050103
  3. CISAPRIDE [Suspect]
     Active Substance: CISAPRIDE
     Indication: GASTROOESOPHAGEAL REFLUX DISEASE
     Route: 048
     Dates: start: 20020806, end: 20050103
  4. CISAPRIDE [Suspect]
     Active Substance: CISAPRIDE
     Route: 048
     Dates: start: 20050107
  5. KCL [Concomitant]
     Active Substance: POTASSIUM CHLORIDE
     Indication: HYPOKALAEMIA
     Dates: start: 20040509
  6. GENTAMICIN. [Concomitant]
     Active Substance: GENTAMICIN
     Indication: OVERGROWTH BACTERIAL
     Dates: start: 20041017, end: 20050103
  7. TRIMETHOPRIM. [Concomitant]
     Active Substance: TRIMETHOPRIM
     Indication: OVERGROWTH BACTERIAL
     Dosage: 1.5 TEASPOON 2 TIMES DAILY
     Dates: start: 20041017, end: 20050103

REACTIONS (1)
  - Small intestinal obstruction [Recovered/Resolved]

NARRATIVE: CASE EVENT DATE: 20050103
